FAERS Safety Report 8772801 (Version 1)
Quarter: 2012Q4

REPORT INFORMATION
  Report Type: 
  Country: GB (occurrence: GB)
  Receive Date: 20120907
  Receipt Date: 20120907
  Transmission Date: 20130627
  Serious: Yes (Hospitalization)
  Sender: FDA-Public Use
  Company Number: GB-PFIZER INC-2012217040

PATIENT
  Age: 91 Year
  Sex: Female

DRUGS (13)
  1. METRONIDAZOLE [Suspect]
     Indication: ANTIBIOTIC THERAPY
     Dosage: 400 mg, 3x/day
     Route: 048
     Dates: start: 20110322, end: 20110329
  2. LANSOPRAZOLE [Suspect]
     Dosage: 30 mg, 1x/day
     Route: 048
  3. PHENOXYMETHYLPENICILLIN CALCIUM [Suspect]
     Indication: ANTIBIOTIC THERAPY
     Dosage: 500 mg, 4x/day
     Route: 048
     Dates: start: 20101011, end: 20101018
  4. FLUCLOXACILLIN [Suspect]
     Indication: ANTIBIOTIC THERAPY
     Dosage: 7 day course in April/May 2010
     Route: 048
     Dates: start: 2010, end: 2010
  5. FLUCLOXACILLIN [Suspect]
     Dosage: 500 mg, 4x/day
     Route: 048
     Dates: start: 20101221, end: 20101228
  6. FLUCLOXACILLIN [Suspect]
     Dosage: 500 mg, 4x/day
     Route: 048
     Dates: end: 20111018
  7. TRIMETHOPRIM [Suspect]
     Indication: ANTIBIOTIC THERAPY
     Dosage: 200 mg, 2x/day
     Route: 048
     Dates: start: 20110104, end: 20110110
  8. FUROSEMIDE [Concomitant]
  9. LISINOPRIL [Concomitant]
  10. ACETYLSALICYLIC ACID [Concomitant]
  11. DALTEPARIN [Concomitant]
  12. SPIRONOLACTONE [Concomitant]
  13. SANDO K [Concomitant]

REACTIONS (2)
  - Clostridium difficile infection [Unknown]
  - Diarrhoea [Unknown]
